FAERS Safety Report 14016055 (Version 1)
Quarter: 2017Q3

REPORT INFORMATION
  Report Type: Spontaneous
  Country: US (occurrence: None)
  Receive Date: 20170927
  Receipt Date: 20170927
  Transmission Date: 20171128
  Serious: No
  Sender: FDA-Public Use
  Company Number: None

PATIENT
  Age: 77 Year
  Sex: Female
  Weight: 66.22 kg

DRUGS (13)
  1. SYNTHROID [Concomitant]
     Active Substance: LEVOTHYROXINE SODIUM
  2. ACETOMINOPHEN [Concomitant]
  3. V-D3 [Concomitant]
  4. MELATONIN [Concomitant]
     Active Substance: MELATONIN
  5. GABAPENTIN 100MG CAPSULE GENERIC FOR NEURONTIN [Suspect]
     Active Substance: GABAPENTIN
     Indication: NEUROPATHY PERIPHERAL
     Dates: start: 20170710, end: 20170831
  6. GABAPENTIN 100MG CAPSULE GENERIC FOR NEURONTIN [Suspect]
     Active Substance: GABAPENTIN
     Indication: MUSCLE SPASTICITY
     Dates: start: 20170710, end: 20170831
  7. COUMADIN [Concomitant]
     Active Substance: WARFARIN SODIUM
  8. FISH OIL [Concomitant]
     Active Substance: FISH OIL
  9. COLCIUM [Concomitant]
  10. EFFEXOR XR [Concomitant]
     Active Substance: VENLAFAXINE HYDROCHLORIDE
  11. DOCUSATE (COLASE) [Concomitant]
  12. CETIRIZINE [Concomitant]
     Active Substance: CETIRIZINE HYDROCHLORIDE
  13. FLAXSEED [Concomitant]
     Active Substance: FLAX SEED

REACTIONS (8)
  - Glossodynia [None]
  - Dry mouth [None]
  - Scab [None]
  - Pharyngeal oedema [None]
  - Dry eye [None]
  - Arthritis [None]
  - Cough [None]
  - Upper-airway cough syndrome [None]

NARRATIVE: CASE EVENT DATE: 20170831
